FAERS Safety Report 7608694-4 (Version None)
Quarter: 2011Q3

REPORT INFORMATION
  Report Type: 
  Country: None (occurrence: None)
  Receive Date: 20110713
  Receipt Date: 20110713
  Transmission Date: 20111222
  Serious: Yes (Other)
  Sender: FDA-Public Use
  Company Number: None

PATIENT
  Age: 51 Year
  Sex: Male
  Weight: 115 kg

DRUGS (3)
  1. CUBICIN [Suspect]
     Indication: PYREXIA
     Dosage: 360 MG DAILY IV
     Route: 042
     Dates: start: 20110617, end: 20110621
  2. CUBICIN [Suspect]
     Indication: SEPSIS
     Dosage: 360 MG DAILY IV
     Route: 042
     Dates: start: 20110617, end: 20110621
  3. METHYLPREDNISOLONE SODIUM SUCCINATE [Suspect]
     Dosage: VARYING DOSES 10 MG TO 125MG DAILY TO Q6H IV BOLUS
     Route: 040
     Dates: start: 20110526, end: 20110711

REACTIONS (1)
  - RHABDOMYOLYSIS [None]
